FAERS Safety Report 5392706-5 (Version None)
Quarter: 2007Q3

REPORT INFORMATION
  Report Type: 
  Country: None (occurrence: None)
  Receive Date: 20070720
  Receipt Date: 20070712
  Transmission Date: 20080115
  Serious: Yes (Death, Other)
  Sender: FDA-Public Use
  Company Number: US-PFIZER INC-2005107415

PATIENT
  Sex: Female
  Weight: 99.8 kg

DRUGS (2)
  1. CELEBREX [Suspect]
     Indication: ILL-DEFINED DISORDER
     Dates: start: 20020217, end: 20040325
  2. CELEBREX [Suspect]
     Indication: ARTHRALGIA

REACTIONS (2)
  - DEATH [None]
  - MYOCARDIAL INFARCTION [None]
